FAERS Safety Report 20118808 (Version 2)
Quarter: 2022Q2

REPORT INFORMATION
  Report Type: Spontaneous
  Country: US (occurrence: US)
  Receive Date: 20211126
  Receipt Date: 20220511
  Transmission Date: 20220720
  Serious: Yes (Other)
  Sender: FDA-Public Use
  Company Number: US-GILEAD-2021-0557107

PATIENT
  Sex: Male
  Weight: 83.9 kg

DRUGS (24)
  1. STRIBILD [Suspect]
     Active Substance: COBICISTAT\ELVITEGRAVIR\EMTRICITABINE\TENOFOVIR DISOPROXIL FUMARATE
     Indication: HIV infection
     Dosage: UNK
     Route: 048
     Dates: start: 201403, end: 201712
  2. TRUVADA [Suspect]
     Active Substance: EMTRICITABINE\TENOFOVIR DISOPROXIL FUMARATE
     Indication: HIV infection
     Dosage: UNK
     Route: 048
     Dates: start: 2014, end: 2014
  3. GENVOYA [Concomitant]
     Active Substance: COBICISTAT\ELVITEGRAVIR\EMTRICITABINE\TENOFOVIR ALAFENAMIDE FUMARATE
  4. BIKTARVY [Concomitant]
     Active Substance: BICTEGRAVIR SODIUM\EMTRICITABINE\TENOFOVIR ALAFENAMIDE FUMARATE
  5. HYDROMORPHONE [Concomitant]
     Active Substance: HYDROMORPHONE
  6. MORPHINE [Concomitant]
     Active Substance: MORPHINE
  7. CIPROFLOXACIN [Concomitant]
     Active Substance: CIPROFLOXACIN
  8. METRONIDAZOLE [Concomitant]
     Active Substance: METRONIDAZOLE
  9. KETOROLAC [Concomitant]
     Active Substance: KETOROLAC TROMETHAMINE
  10. AMOXICILLIN\CLAVULANATE POTASSIUM [Concomitant]
     Active Substance: AMOXICILLIN\CLAVULANATE POTASSIUM
  11. METHYLPREDNISOLONE [Concomitant]
     Active Substance: METHYLPREDNISOLONE
  12. SULFAMETHOXAZOLE\TRIMETHOPRIM [Concomitant]
     Active Substance: SULFAMETHOXAZOLE\TRIMETHOPRIM
  13. CEPHALEXIN [Concomitant]
     Active Substance: CEPHALEXIN
  14. OXYCODONE [Concomitant]
     Active Substance: OXYCODONE
  15. CYCLOBENZAPRINE [Concomitant]
     Active Substance: CYCLOBENZAPRINE
  16. PREDNISONE [Concomitant]
     Active Substance: PREDNISONE
  17. IBUPROFEN [Concomitant]
     Active Substance: IBUPROFEN
  18. AZITHROMYCIN [Concomitant]
     Active Substance: AZITHROMYCIN
  19. KETOCONAZOLE [Concomitant]
     Active Substance: KETOCONAZOLE
  20. TRAMADOL [Concomitant]
     Active Substance: TRAMADOL
  21. GABAPENTIN [Concomitant]
     Active Substance: GABAPENTIN
  22. MELOXICAM [Concomitant]
     Active Substance: MELOXICAM
  23. PIROXICAM [Concomitant]
     Active Substance: PIROXICAM
  24. MINERALS\VITAMINS [Concomitant]
     Active Substance: MINERALS\VITAMINS

REACTIONS (18)
  - Osteoporosis [Not Recovered/Not Resolved]
  - Facial bones fracture [Unknown]
  - Hand fracture [Not Recovered/Not Resolved]
  - Pain [Not Recovered/Not Resolved]
  - Emotional distress [Not Recovered/Not Resolved]
  - Anxiety [Not Recovered/Not Resolved]
  - Anhedonia [Not Recovered/Not Resolved]
  - Muscular weakness [Unknown]
  - Pain in extremity [Unknown]
  - Hypoaesthesia [Unknown]
  - Sciatica [Unknown]
  - Stress fracture [Not Recovered/Not Resolved]
  - Skeletal injury [Unknown]
  - Mobility decreased [Not Recovered/Not Resolved]
  - Post-traumatic stress disorder [Not Recovered/Not Resolved]
  - Depression [Unknown]
  - Asthenia [Unknown]
  - Weight increased [Unknown]

NARRATIVE: CASE EVENT DATE: 20190101
